FAERS Safety Report 8955772 (Version 1)
Quarter: 2012Q4

REPORT INFORMATION
  Report Type: Spontaneous
  Country: GB (occurrence: None)
  Receive Date: 20121130
  Receipt Date: 20121130
  Transmission Date: 20130627
  Serious: Yes (Hospitalization)
  Sender: FDA-Public Use
  Company Number: 2012-20654

PATIENT
  Age: 73 Year
  Sex: Male

DRUGS (3)
  1. IBUPROFEN (UNKNOWN) (IBUPROFEN) UNK, UNKUNK [Suspect]
     Indication: PAIN
     Route: 048
     Dates: end: 20031205
  2. TRAMADOL [Concomitant]
  3. VENLAFAXINE [Concomitant]

REACTIONS (4)
  - Haematemesis [None]
  - Hiatus hernia [None]
  - Duodenal ulcer [None]
  - Helicobacter test positive [None]
